FAERS Safety Report 6207118-1 (Version None)
Quarter: 2009Q2

REPORT INFORMATION
  Report Type: 
  Country: None (occurrence: None)
  Receive Date: 20090528
  Receipt Date: 20081230
  Transmission Date: 20091009
  Serious: Yes (Other)
  Sender: FDA-Public Use
  Company Number: CN-PFIZER INC-2008161116

PATIENT
  Age: 63 Year
  Sex: Female

DRUGS (2)
  1. SOLU-MEDROL [Suspect]
     Indication: NAUSEA
     Route: 042
  2. SOLU-MEDROL [Suspect]
     Indication: VOMITING

REACTIONS (7)
  - ANXIETY [None]
  - DEPRESSED MOOD [None]
  - HALLUCINATION, AUDITORY [None]
  - ILLUSION [None]
  - MENTAL DISORDER [None]
  - PSYCHIATRIC SYMPTOM [None]
  - SPEECH DISORDER [None]
